FAERS Safety Report 25043583 (Version 1)
Quarter: 2025Q1

REPORT INFORMATION
  Report Type: Spontaneous
  Country: IT (occurrence: IT)
  Receive Date: 20250306
  Receipt Date: 20250306
  Transmission Date: 20250409
  Serious: Yes (Other)
  Sender: TAKEDA
  Company Number: IT-TAKEDA-2025TUS022718

PATIENT
  Age: 22 Year
  Sex: Female

DRUGS (3)
  1. MARIBAVIR [Suspect]
     Active Substance: MARIBAVIR
     Indication: Cytomegalovirus infection
     Dosage: 400 MILLIGRAM, BID
  2. GANCICLOVIR [Concomitant]
     Active Substance: GANCICLOVIR
  3. FOSCARNET [Concomitant]
     Active Substance: FOSCARNET

REACTIONS (2)
  - Haemolytic anaemia [Unknown]
  - Drug resistance [Unknown]
